FAERS Safety Report 5285244-1 (Version None)
Quarter: 2007Q1

REPORT INFORMATION
  Report Type: 
  Country: None (occurrence: None)
  Receive Date: 20070328
  Receipt Date: 20070321
  Transmission Date: 20070707
  Serious: Yes (Death)
  Sender: FDA-Public Use
  Company Number: 2007US000595

PATIENT
  Age: 81 Year
  Sex: Female

DRUGS (11)
  1. AMBIOSOME (AMPHOTERICIN B) INJECTION [Suspect]
     Indication: SYSTEMIC MYCOSIS
     Dosage: 50 MG, UID/QD; IV DRIP
     Route: 041
     Dates: start: 20061123, end: 20061129
  2. BACTRIM [Suspect]
     Indication: PNEUMOCYSTIS JIROVECI PNEUMONIA
     Dosage: 600 MG, UID/QD; IV DRIP
     Route: 041
     Dates: start: 20061125, end: 20061129
  3. LASIX [Concomitant]
  4. SOLDACTONE (POTASSIUM CANRENOATE) [Concomitant]
  5. GASTER [Concomitant]
  6. DALACIN-S [Concomitant]
  7. TIENAM (IMIPENEM, CILASTATIN SODIUM) [Concomitant]
  8. NEU-UP (NARTOGRASTIM) [Concomitant]
  9. TARGOCID [Concomitant]
  10. PREDNISOLONE [Concomitant]
  11. NEOPHAGEN (GLYCYRRHIZINATE POTASSIUM) [Concomitant]

REACTIONS (4)
  - HAEMOLYTIC ANAEMIA [None]
  - PNEUMOCYSTIS JIROVECI PNEUMONIA [None]
  - PSYCHIATRIC SYMPTOM [None]
  - RESTLESSNESS [None]
